FAERS Safety Report 24729553 (Version 1)
Quarter: 2024Q4

REPORT INFORMATION
  Report Type: Spontaneous
  Country: JP (occurrence: JP)
  Receive Date: 20241213
  Receipt Date: 20241213
  Transmission Date: 20250115
  Serious: Yes (Death)
  Sender: ASTELLAS
  Company Number: JP-ASTELLAS-2024-AER-022389

PATIENT
  Age: 7 Decade
  Sex: Male

DRUGS (1)
  1. VYLOY [Suspect]
     Active Substance: ZOLBETUXIMAB-CLZB
     Indication: Gastric cancer stage IV
     Dosage: 600 MG
     Route: 042
     Dates: start: 20241003, end: 20241003

REACTIONS (2)
  - Completed suicide [Fatal]
  - Product use issue [Unknown]

NARRATIVE: CASE EVENT DATE: 20241003
